FAERS Safety Report 8889802 (Version 1)
Quarter: 2012Q4

REPORT INFORMATION
  Report Type: 
  Country: US (occurrence: US)
  Receive Date: 20121107
  Receipt Date: 20121107
  Transmission Date: 20130627
  Serious: No
  Sender: FDA-Public Use
  Company Number: US-TEVA-366330USA

PATIENT
  Sex: Female

DRUGS (2)
  1. ACTIQ [Suspect]
     Indication: CROHN^S DISEASE
  2. ACTIQ [Suspect]
     Indication: MALABSORPTION

REACTIONS (2)
  - Off label use [Unknown]
  - Drug ineffective [Unknown]
